FAERS Safety Report 7670588-6 (Version None)
Quarter: 2011Q3

REPORT INFORMATION
  Report Type: 
  Country: None (occurrence: None)
  Receive Date: 20110809
  Receipt Date: 20110802
  Transmission Date: 20111222
  Serious: No
  Sender: FDA-Public Use
  Company Number: US-BIOGENIDEC-2011BI028976

PATIENT
  Age: 42 Year
  Sex: Female

DRUGS (1)
  1. TYSABRI [Suspect]
     Indication: MULTIPLE SCLEROSIS
     Route: 042
     Dates: start: 20090818

REACTIONS (8)
  - VITAMIN B12 DECREASED [None]
  - SINUSITIS [None]
  - FATIGUE [None]
  - VISION BLURRED [None]
  - TEMPERATURE INTOLERANCE [None]
  - HEADACHE [None]
  - URINARY TRACT INFECTION [None]
  - CONTUSION [None]
